FAERS Safety Report 6021525-1 (Version None)
Quarter: 2008Q4

REPORT INFORMATION
  Report Type: 
  Country: None (occurrence: None)
  Receive Date: 20081229
  Receipt Date: 20081219
  Transmission Date: 20090506
  Serious: Yes (Other)
  Sender: FDA-Public Use
  Company Number: B0551138A

PATIENT
  Age: 29 Year
  Sex: Female

DRUGS (8)
  1. FORMIGRAN [Suspect]
     Route: 065
     Dates: start: 20080201, end: 20081215
  2. ALLEGRON [Suspect]
     Indication: DRUG USE FOR UNKNOWN INDICATION
     Route: 065
  3. THOMAPYRIN [Suspect]
     Indication: DRUG USE FOR UNKNOWN INDICATION
     Route: 065
  4. UNKNOWN MEDICATION [Concomitant]
  5. FENOFIBRATE [Concomitant]
  6. OMEPRAZOLE [Concomitant]
  7. RANITIDINE [Concomitant]
  8. PROPRANOLOL [Concomitant]
     Indication: MIGRAINE PROPHYLAXIS

REACTIONS (3)
  - DRUG ABUSE [None]
  - DRUG ADMINISTRATION ERROR [None]
  - OVERDOSE [None]
